FAERS Safety Report 19810159 (Version 3)
Quarter: 2022Q4

REPORT INFORMATION
  Report Type: Other
  Country: IT (occurrence: IT)
  Receive Date: 20210909
  Receipt Date: 20221202
  Transmission Date: 20230112
  Serious: Yes (Hospitalization, Other)
  Sender: FDA-Public Use
  Company Number: IT-MACLEODS PHARMACEUTICALS US LTD-MAC2021032617

PATIENT

DRUGS (17)
  1. LEVOFLOXACIN [Interacting]
     Active Substance: LEVOFLOXACIN
     Indication: COVID-19
     Dosage: UNK START DATE 2020 AND STOP DATE 2020
     Route: 065
  2. HALOPERIDOL [Interacting]
     Active Substance: HALOPERIDOL
     Indication: COVID-19
     Dosage: UNK START DATE 2020 AND STOP DATE 2020
     Route: 065
  3. PIPERACILLIN SODIUM\TAZOBACTAM SODIUM [Interacting]
     Active Substance: PIPERACILLIN SODIUM\TAZOBACTAM SODIUM
     Indication: COVID-19 pneumonia
     Dosage: UNK START DATE 2020 AND STOP DATE 2020
     Route: 065
  4. LOPINAVIR\RITONAVIR [Suspect]
     Active Substance: LOPINAVIR\RITONAVIR
     Indication: COVID-19 pneumonia
     Dosage: UNK START DATE AND STOP DATE ARE 2020
     Route: 048
  5. METHYLPREDNISOLONE [Suspect]
     Active Substance: METHYLPREDNISOLONE
     Indication: COVID-19
     Dosage: UNK START DATE 2020 AND STOP DATE 2020
     Route: 065
     Dates: start: 2020, end: 2020
  6. ASPIRIN [Interacting]
     Active Substance: ASPIRIN
     Indication: Product used for unknown indication
     Dosage: UNK
     Route: 065
  7. ENOXAPARIN [Suspect]
     Active Substance: ENOXAPARIN
     Indication: COVID-19
     Dosage: UNK START DATE 2020 AND STOP DATE 2020
     Route: 065
  8. VANCOMYCIN [Suspect]
     Active Substance: VANCOMYCIN
     Indication: COVID-19 pneumonia
     Dosage: UNK START DATE 2020 AND STOP DATE 2020
     Route: 065
  9. IOPAMIDOL [Interacting]
     Active Substance: IOPAMIDOL
     Indication: COVID-19
     Dosage: UNK START DATE 2020 AND STOP DATE 2020
     Route: 065
  10. HYDROXYZINE [Suspect]
     Active Substance: HYDROXYZINE HYDROCHLORIDE
     Indication: COVID-19
     Dosage: UNK (START DATE IN 2020 AND STOP DATE IN 2020)
     Route: 065
  11. FLUVOXAMINE [Interacting]
     Active Substance: FLUVOXAMINE
     Indication: COVID-19 pneumonia
     Dosage: UNK START DATE 2020 AND STOP DATE 2020
     Route: 048
  12. FUROSEMIDE [Suspect]
     Active Substance: FUROSEMIDE
     Indication: COVID-19
     Dosage: UNK (STARTED AND STOPPED IN 2020)
     Route: 065
  13. HYDROXYCHLOROQUINE [Suspect]
     Active Substance: HYDROXYCHLOROQUINE
     Indication: COVID-19 pneumonia
     Dosage: UNK START DATE 2020 AND STOP DATE 2020
     Route: 065
  14. IOPROMIDE [Suspect]
     Active Substance: IOPROMIDE
     Indication: COVID-19 pneumonia
     Dosage: UNK; START DATE AND STOP DATE ARE 2020)
     Route: 065
  15. LORAZEPAM [Interacting]
     Active Substance: LORAZEPAM
     Indication: COVID-19
     Dosage: UNK START DATE 2020 AND STOP DATE 2020
     Route: 065
  16. PROMAZINE [Interacting]
     Active Substance: PROMAZINE
     Indication: COVID-19
     Dosage: UNK START DATE 2020 AND STOP DATE 2020
     Route: 065
  17. OXYGEN [Concomitant]
     Active Substance: OXYGEN
     Indication: Product used for unknown indication
     Dosage: UNK (INHALATION GAS), NON INVASIVE MECHANICAL VENTILATION

REACTIONS (5)
  - Drug reaction with eosinophilia and systemic symptoms [Recovered/Resolved]
  - Drug hypersensitivity [Unknown]
  - Rash maculo-papular [Unknown]
  - Drug interaction [Unknown]
  - Off label use [Unknown]
